FAERS Safety Report 9183684 (Version 1)
Quarter: 2012Q4

REPORT INFORMATION
  Report Type: 
  Country: BR (occurrence: BR)
  Receive Date: 20121101
  Receipt Date: 20121101
  Transmission Date: 20130627
  Serious: Yes (Other)
  Sender: FDA-Public Use
  Company Number: BR-PFIZER INC-2012260195

PATIENT
  Age: 66 Year
  Sex: Female

DRUGS (2)
  1. LYRICA [Suspect]
     Indication: FIBROMYALGIA
     Dosage: 1 capsule (75mg)
     Route: 048
     Dates: end: 20121017
  2. PREDNISONE [Concomitant]
     Dosage: 1 tablet (5 mg) a day
     Dates: start: 2008

REACTIONS (7)
  - Blood pressure increased [Unknown]
  - Chest pain [Unknown]
  - Dyspnoea [Unknown]
  - Fall [Unknown]
  - Feeling drunk [Unknown]
  - Dizziness [Unknown]
  - Anxiety [Unknown]
